FAERS Safety Report 5050131-0 (Version None)
Quarter: 2006Q3

REPORT INFORMATION
  Report Type: 
  Country: None (occurrence: None)
  Receive Date: 20060713
  Receipt Date: 20060522
  Transmission Date: 20061208
  Serious: Yes (Hospitalization)
  Sender: FDA-Public Use
  Company Number: HQWYE526024MAY06

PATIENT
  Sex: Male
  Weight: 51 kg

DRUGS (16)
  1. ENBREL [Suspect]
     Indication: RHEUMATOID ARTHRITIS
     Route: 058
     Dates: start: 20060111, end: 20060502
  2. PREDONINE [Suspect]
     Indication: RHEUMATOID ARTHRITIS
     Route: 065
  3. PREDNISOLONE [Suspect]
     Indication: RHEUMATOID ARTHRITIS
     Route: 065
  4. PROGRAF [Suspect]
     Indication: RHEUMATOID ARTHRITIS
     Route: 048
     Dates: start: 20051214, end: 20060601
  5. ISCOTIN [Concomitant]
     Indication: ANTIBIOTIC PROPHYLAXIS
     Route: 048
     Dates: start: 20050824
  6. PARIET [Concomitant]
     Dosage: UNSPEXCIFIED DOSE
     Route: 048
  7. ALFAROL [Concomitant]
     Dosage: UNSPECIFIED DOSE
     Route: 048
  8. HARNAL [Concomitant]
     Dosage: UNSPECIFIED DOSE
     Route: 048
  9. PYDOXAL [Concomitant]
     Dosage: UNSPECIFIED DOSE
     Route: 048
  10. PANALDINE [Concomitant]
     Dosage: UNSPECIFIED DOSE
     Route: 048
  11. MAGNESIUM OXIDE [Concomitant]
     Route: 065
  12. MYONAL [Concomitant]
     Dosage: UNSPECIFIED DOSE
     Route: 048
  13. CEROCRAL [Concomitant]
     Dosage: UNSPECIFIED DOSE
     Route: 048
  14. VOLTAREN [Concomitant]
     Indication: RHEUMATOID ARTHRITIS
     Dosage: UNSPECIFIED DOSE
     Route: 054
  15. ACTONEL [Concomitant]
     Dosage: UNSPECIFIED DOSE
     Route: 048
  16. ELCITONIN [Concomitant]
     Dosage: UNSPECIFIED DOSE VIA INJECTION (UNSPECIFIED)
     Route: 065

REACTIONS (2)
  - COMPRESSION FRACTURE [None]
  - PNEUMONIA PNEUMOCOCCAL [None]
